FAERS Safety Report 20107225 (Version 1)
Quarter: 2021Q4

REPORT INFORMATION
  Report Type: Report from Study
  Country: US (occurrence: US)
  Receive Date: 20211124
  Receipt Date: 20211124
  Transmission Date: 20220303
  Serious: No
  Sender: FDA-Public Use
  Company Number: US-NOVARTISTESTPH-NVSC2021US267973

PATIENT
  Sex: Male

DRUGS (2)
  1. PROMACTA [Suspect]
     Active Substance: ELTROMBOPAG OLAMINE
     Indication: Immune thrombocytopenia
     Dosage: 50 MG (TAKE 1 TABLET BY MOUTH EVERY DAY ON AN EMPTY STOMACH, 1 HOUR BEFORE OR 2 HOURS AFTER FOOD)
     Route: 048
  2. PROMACTA [Suspect]
     Active Substance: ELTROMBOPAG OLAMINE
     Dosage: 20 MG
     Route: 048

REACTIONS (2)
  - Full blood count abnormal [Unknown]
  - Platelet count decreased [Unknown]
